FAERS Safety Report 4924147-6 (Version None)
Quarter: 2006Q1

REPORT INFORMATION
  Report Type: 
  Country: None (occurrence: None)
  Receive Date: 20060227
  Receipt Date: 20051122
  Transmission Date: 20060701
  Serious: No
  Sender: FDA-Public Use
  Company Number: US-GLAXOSMITHKLINE-A0583466A

PATIENT
  Age: 46 Year
  Sex: Male

DRUGS (3)
  1. WELLBUTRIN XL [Suspect]
     Indication: DEPRESSION
     Dosage: 150MG PER DAY
     Route: 048
     Dates: start: 20051101
  2. TRAZODONE [Concomitant]
  3. CAMPRAL [Concomitant]

REACTIONS (2)
  - DRY MOUTH [None]
  - PHARYNGOLARYNGEAL PAIN [None]
